FAERS Safety Report 5689800-8 (Version None)
Quarter: 2008Q1

REPORT INFORMATION
  Report Type: 
  Country: None (occurrence: None)
  Receive Date: 20080328
  Receipt Date: 20080314
  Transmission Date: 20080703
  Serious: Yes (Other)
  Sender: FDA-Public Use
  Company Number: BR-1165586

PATIENT
  Age: 68 Year

DRUGS (1)
  1. FLORATE (FLUOROMETHOLONE ACETATE) 0.1% SUSPENSION LOT# 33123 EYE DROPS [Suspect]
     Indication: HYPERSENSITIVITY
     Dosage: 1 GTT OU Q4H WITHIN 15 DAYSM THEN Q6H, OPHTHALMIC
     Route: 047
     Dates: start: 20071015, end: 20071215

REACTIONS (2)
  - VISION BLURRED [None]
  - VITREOUS DETACHMENT [None]
